FAERS Safety Report 23777686 (Version 1)
Quarter: 2024Q2

REPORT INFORMATION
  Report Type: Spontaneous
  Country: ES (occurrence: ES)
  Receive Date: 20240424
  Receipt Date: 20240424
  Transmission Date: 20240715
  Serious: Yes (Hospitalization, Other)
  Sender: FDA-Public Use
  Company Number: ES-GLANDPHARMA-ES-2024GLNLIT00024

PATIENT
  Sex: Male
  Weight: 64 kg

DRUGS (2)
  1. HEPARIN SODIUM [Suspect]
     Active Substance: HEPARIN SODIUM
     Indication: Anticoagulant therapy
     Dosage: BOLUS
     Route: 065
  2. HEPARIN SODIUM [Suspect]
     Active Substance: HEPARIN SODIUM
     Dosage: PER HOUR
     Route: 065

REACTIONS (4)
  - Haemodynamic instability [Unknown]
  - Heparin-induced thrombocytopenia [Unknown]
  - Haemorrhage [Unknown]
  - Deep vein thrombosis [Unknown]
